FAERS Safety Report 21811587 (Version 1)
Quarter: 2023Q1

REPORT INFORMATION
  Report Type: Report from Study
  Country: US (occurrence: US)
  Receive Date: 20230103
  Receipt Date: 20230103
  Transmission Date: 20230418
  Serious: Yes (Other)
  Sender: FDA-Public Use
  Company Number: US-MYLANLABS-2020307374

PATIENT
  Sex: Male
  Weight: 117.9 kg

DRUGS (3)
  1. LYRICA [Suspect]
     Active Substance: PREGABALIN
     Indication: Diabetic neuropathy
     Dosage: 75 MILLIGRAM, BID (2X/DAY)
     Route: 065
  2. LYRICA [Suspect]
     Active Substance: PREGABALIN
     Indication: Neuralgia
     Dosage: 75 MG, 4X/DAY (1 CAP BY MOUTH 4 TIMES DAILY)
     Route: 048
  3. LYRICA [Suspect]
     Active Substance: PREGABALIN
     Dosage: 75 MILLIGRAM, Q6H
     Route: 048

REACTIONS (2)
  - Diabetes mellitus [Unknown]
  - Off label use [Unknown]
